FAERS Safety Report 10714721 (Version 2)
Quarter: 2015Q1

REPORT INFORMATION
  Report Type: Spontaneous
  Country: FR (occurrence: FR)
  Receive Date: 20150115
  Receipt Date: 20150123
  Transmission Date: 20150721
  Serious: Yes (Life-Threatening, Hospitalization, Other)
  Sender: FDA-Public Use
  Company Number: FR-PFIZER INC-2015012976

PATIENT
  Age: 53 Year
  Sex: Female

DRUGS (5)
  1. JANUMET [Suspect]
     Active Substance: METFORMIN HYDROCHLORIDE\SITAGLIPTIN PHOSPHATE
     Dosage: 1 DF, 2X/DAY
     Route: 048
     Dates: end: 20130324
  2. BI-PROFENID [Concomitant]
     Active Substance: KETOPROFEN
     Indication: MUSCULOSKELETAL CHEST PAIN
     Dosage: UNK
     Dates: start: 20140322
  3. LEGALON [Concomitant]
     Active Substance: MILK THISTLE
     Dosage: UNK
     Dates: end: 20130324
  4. TRIATEC [Suspect]
     Active Substance: RAMIPRIL
     Indication: RENAL IMPAIRMENT
     Dosage: 10 MG, DAILY
     Route: 048
     Dates: start: 201203, end: 20130324
  5. DIAMICRON [Concomitant]
     Active Substance: GLICLAZIDE
     Dosage: UNK
     Dates: end: 20130324

REACTIONS (4)
  - Shock [Unknown]
  - Rib fracture [Unknown]
  - Oral infection [Unknown]
  - Angioedema [Recovered/Resolved]

NARRATIVE: CASE EVENT DATE: 20130324
